FAERS Safety Report 16343984 (Version 1)
Quarter: 2019Q2

REPORT INFORMATION
  Report Type: Spontaneous
  Country: CH (occurrence: CH)
  Receive Date: 20190522
  Receipt Date: 20190522
  Transmission Date: 20190711
  Serious: Yes (Other)
  Sender: FDA-Public Use
  Company Number: CH-ANIPHARMA-2019-CH-000025

PATIENT
  Age: 76 Year
  Sex: Male

DRUGS (4)
  1. TAMSULOSIN [Concomitant]
     Active Substance: TAMSULOSIN
     Dosage: .4 MG UNK
     Route: 065
     Dates: start: 201807
  2. CANDESARTAN CILEXETIL. [Suspect]
     Active Substance: CANDESARTAN CILEXETIL
     Indication: PRODUCT USED FOR UNKNOWN INDICATION
     Dosage: 8 MG DAILY / 16 MG DAILY
     Route: 048
     Dates: start: 20131004
  3. AMLODIPINE [Concomitant]
     Active Substance: AMLODIPINE BESYLATE
     Dosage: INITIALLY 5 MG, LATER AND CURRENTLY 10 MG
     Route: 065
     Dates: start: 201612
  4. RILUTEK [Concomitant]
     Active Substance: RILUZOLE
     Dosage: UNK
     Route: 065
     Dates: start: 201811

REACTIONS (1)
  - Amyotrophic lateral sclerosis [Unknown]

NARRATIVE: CASE EVENT DATE: 201810
